FAERS Safety Report 7287064-5 (Version None)
Quarter: 2011Q1

REPORT INFORMATION
  Report Type: 
  Country: None (occurrence: None)
  Receive Date: 20110211
  Receipt Date: 20110131
  Transmission Date: 20110831
  Serious: No
  Sender: FDA-Public Use
  Company Number: US-BIOGENIDEC-2011BI004568

PATIENT
  Age: 31 Year
  Sex: Female

DRUGS (2)
  1. TYSABRI [Suspect]
     Indication: MULTIPLE SCLEROSIS
     Route: 042
     Dates: start: 20100302
  2. TYSABRI [Suspect]
     Route: 042
     Dates: start: 20090323, end: 20091103

REACTIONS (7)
  - SENSATION OF HEAVINESS [None]
  - WEIGHT INCREASED [None]
  - FATIGUE [None]
  - TEMPERATURE INTOLERANCE [None]
  - DRUG EFFECT DECREASED [None]
  - FALL [None]
  - DIZZINESS [None]
